FAERS Safety Report 8594997 (Version 3)
Quarter: 2013Q3

REPORT INFORMATION
  Report Type: Report from Study
  Country: US (occurrence: US)
  Receive Date: 20120604
  Receipt Date: 20130802
  Transmission Date: 20140515
  Serious: Yes (Hospitalization)
  Sender: FDA-Public Use
  Company Number: US-B.I. PHARMACEUTICALS,INC./RIDGEFIELD-2012-EU-02919GD

PATIENT
  Sex: 0

DRUGS (3)
  1. DABIGATRAN [Suspect]
     Indication: CEREBROVASCULAR ACCIDENT PROPHYLAXIS
     Dosage: 300 MG
     Route: 048
  2. DABIGATRAN [Suspect]
     Indication: ATRIAL FIBRILLATION
  3. HEPARIN [Suspect]
     Dosage: 200 UNITS/KG AS AN INITIAL BOLUS AND BOLUS INFUSIONS WERE THEN ADMINISTERED TO MAINTAIN A TARGET ACT

REACTIONS (2)
  - Transient ischaemic attack [Recovered/Resolved]
  - Visual field defect [Recovered/Resolved]
